FAERS Safety Report 8301159-6 (Version None)
Quarter: 2012Q2

REPORT INFORMATION
  Report Type: 
  Country: None (occurrence: None)
  Receive Date: 20120420
  Receipt Date: 20120413
  Transmission Date: 20120825
  Serious: Yes (Hospitalization, Other)
  Sender: FDA-Public Use
  Company Number: PHHY2012DE012790

PATIENT
  Age: 51 Year
  Sex: Female

DRUGS (9)
  1. LASIX [Concomitant]
     Indication: OEDEMA
  2. SPIRONOLACTONE [Concomitant]
     Indication: PLEURAL EFFUSION
     Route: 048
  3. XIPAMIDE [Concomitant]
     Indication: PLEURAL EFFUSION
     Route: 048
  4. SPIRONOLACTONE [Concomitant]
     Indication: OEDEMA
  5. XIPAMIDE [Concomitant]
     Indication: OEDEMA
  6. ALLOPURINOL [Concomitant]
     Indication: HYPERURICAEMIA
     Route: 048
  7. ESTRADERM [Suspect]
     Dosage: 1 PATCH EVERY 3 OR 4 DAYS  25 UG/24 HOURS
     Route: 062
  8. LASIX [Concomitant]
     Indication: PLEURAL EFFUSION
     Route: 048
  9. ESTRADERM [Suspect]
     Indication: HORMONE REPLACEMENT THERAPY
     Dosage: 1 PATCH EVERY 3 OR 4 DAYS (50MCG)
     Route: 062
     Dates: start: 20110901, end: 20120131

REACTIONS (2)
  - GASTROINTESTINAL INFECTION [None]
  - PLEURAL EFFUSION [None]
